FAERS Safety Report 4424862-7 (Version None)
Quarter: 2004Q3

REPORT INFORMATION
  Report Type: 
  Country: None (occurrence: None)
  Receive Date: 20040719
  Receipt Date: 20030714
  Transmission Date: 20050211
  Serious: Yes (Hospitalization)
  Sender: FDA-Public Use
  Company Number: 175794

PATIENT
  Age: 42 Year
  Sex: Female
  Weight: 115.2136 kg

DRUGS (9)
  1. AVONEX [Suspect]
     Indication: MULTIPLE SCLEROSIS
     Dosage: 30 MCG QW IM
     Route: 030
     Dates: start: 20011101, end: 20030201
  2. PAXIL [Concomitant]
  3. PREVACID [Concomitant]
  4. AMANTADINE HCL [Concomitant]
  5. TIZANIDINE HYDROCHLORIDE [Concomitant]
  6. CELEBRE [Concomitant]
  7. IBUPROFEN [Concomitant]
  8. ZYRTEC [Concomitant]
  9. FLONASE [Concomitant]

REACTIONS (2)
  - MULTIPLE SCLEROSIS [None]
  - MULTIPLE SCLEROSIS RELAPSE [None]
